FAERS Safety Report 7787494-9 (Version None)
Quarter: 2011Q3

REPORT INFORMATION
  Report Type: 
  Country: None (occurrence: None)
  Receive Date: 20110929
  Receipt Date: 20110926
  Transmission Date: 20111222
  Serious: Yes (Life-Threatening, Hospitalization)
  Sender: FDA-Public Use
  Company Number: AU-B.I. PHARMACEUTICALS,INC./RIDGEFIELD-2011-AU-01436AU

PATIENT
  Sex: Male
  Weight: 105 kg

DRUGS (6)
  1. SYMBICORT [Concomitant]
     Dosage: 400/12 MCG
  2. PRADAXA [Suspect]
     Indication: ATRIAL FIBRILLATION
  3. DIGOXIN [Concomitant]
  4. PRADAXA [Suspect]
     Indication: CEREBROVASCULAR ACCIDENT PROPHYLAXIS
     Dosage: 300 MG
     Dates: start: 20110630, end: 20110913
  5. COVERSYL PLUS [Concomitant]
     Dosage: 5/1.25 MG
  6. ZOCOR [Concomitant]

REACTIONS (3)
  - GRAND MAL CONVULSION [None]
  - CEREBRAL HAEMORRHAGE [None]
  - SUBDURAL HAEMATOMA [None]
